FAERS Safety Report 14922958 (Version 4)
Quarter: 2018Q2

REPORT INFORMATION
  Report Type: Spontaneous
  Country: JP (occurrence: JP)
  Receive Date: 20180522
  Receipt Date: 20180621
  Transmission Date: 20180711
  Serious: Yes (Hospitalization, Other)
  Sender: FDA-Public Use
  Company Number: PHJP2018JP010958

PATIENT
  Sex: Female

DRUGS (5)
  1. DONEPEZIL HYDROCHLORIDE. [Concomitant]
     Active Substance: DONEPEZIL HYDROCHLORIDE
     Indication: PARKINSON^S DISEASE
     Dosage: 10 MG, UNK
     Route: 065
  2. ZONISAMIDE. [Concomitant]
     Active Substance: ZONISAMIDE
     Indication: PARKINSON^S DISEASE
     Dosage: 50 MG, UNK
     Route: 065
  3. COMTAN [Suspect]
     Active Substance: ENTACAPONE
     Indication: PARKINSON^S DISEASE
     Dosage: 400 MG, UNK
     Route: 048
  4. COMTAN [Suspect]
     Active Substance: ENTACAPONE
     Dosage: 400 MG, UNK
     Route: 048
  5. AMANTADINE. [Suspect]
     Active Substance: AMANTADINE HYDROCHLORIDE
     Indication: PARKINSON^S DISEASE
     Dosage: 100 MG, UNK
     Route: 065

REACTIONS (13)
  - Disease progression [Unknown]
  - Delusion [Unknown]
  - Muscle rigidity [Unknown]
  - Hypophagia [Unknown]
  - Pneumonia [Recovered/Resolved]
  - Cognitive disorder [Unknown]
  - Eating disorder [Recovering/Resolving]
  - Dysstasia [Unknown]
  - Hallucination [Unknown]
  - Trismus [Unknown]
  - Fractured sacrum [Unknown]
  - Parkinson^s disease [Unknown]
  - Depressed level of consciousness [Unknown]
